FAERS Safety Report 6182169-4 (Version None)
Quarter: 2009Q2

REPORT INFORMATION
  Report Type: 
  Country: None (occurrence: None)
  Receive Date: 20090505
  Receipt Date: 20090415
  Transmission Date: 20091009
  Serious: Yes (Hospitalization)
  Sender: FDA-Public Use
  Company Number: 8044871

PATIENT
  Age: 81 Year
  Sex: Male

DRUGS (6)
  1. XYZAL [Suspect]
     Indication: PRURITUS
     Dosage: 1 DF
     Dates: start: 20090316, end: 20090317
  2. LANSOPRAZOLE [Concomitant]
  3. AVODART [Concomitant]
  4. UNOPROST /00685102/ [Concomitant]
  5. ASPIRIN [Concomitant]
  6. MINIAS [Concomitant]

REACTIONS (5)
  - PRURITUS [None]
  - RASH ERYTHEMATOUS [None]
  - SCAB [None]
  - SKIN EXFOLIATION [None]
  - URTICARIA [None]
